FAERS Safety Report 5149195-5 (Version None)
Quarter: 2006Q4

REPORT INFORMATION
  Report Type: 
  Country: None (occurrence: None)
  Receive Date: 20061113
  Receipt Date: 20060908
  Transmission Date: 20070319
  Serious: No
  Sender: FDA-Public Use
  Company Number: US-GLAXOSMITHKLINE-A0619577A

PATIENT
  Age: 83 Year
  Sex: Male

DRUGS (6)
  1. COREG [Suspect]
     Dosage: 3.125MG TWICE PER DAY
     Route: 048
     Dates: start: 20060101
  2. LASIX [Concomitant]
  3. KLOR-CON [Concomitant]
  4. UNKNOWN MEDICATION [Concomitant]
  5. COUMADIN [Concomitant]
  6. SPIRIVA [Concomitant]

REACTIONS (3)
  - DYSPNOEA [None]
  - HEART RATE IRREGULAR [None]
  - PARAESTHESIA [None]
